FAERS Safety Report 11852498 (Version 1)
Quarter: 2015Q4

REPORT INFORMATION
  Report Type: Spontaneous
  Country: US (occurrence: US)
  Receive Date: 20151218
  Receipt Date: 20151218
  Transmission Date: 20160305
  Serious: No
  Sender: FDA-Public Use
  Company Number: US-BAYER-2015-491887

PATIENT
  Age: 4 Year
  Sex: Male

DRUGS (2)
  1. CLARITIN [Suspect]
     Active Substance: LORATADINE
     Indication: SNEEZING
  2. CLARITIN [Suspect]
     Active Substance: LORATADINE
     Indication: HEAD DISCOMFORT

REACTIONS (3)
  - Head discomfort [None]
  - Product use issue [None]
  - Sneezing [None]
